FAERS Safety Report 8524607-5 (Version None)
Quarter: 2012Q3

REPORT INFORMATION
  Report Type: 
  Country: None (occurrence: None)
  Receive Date: 20120720
  Receipt Date: 20100401
  Transmission Date: 20120928
  Serious: Yes (Death)
  Sender: FDA-Public Use
  Company Number: AT-ROCHE-694745

PATIENT
  Age: 46 Year
  Sex: Male
  Weight: 86 kg

DRUGS (5)
  1. XELODA [Suspect]
     Dosage: 3 DOSE FORM IN THE MORNING AND 3 DOSE FORM IN THE EVENING
     Route: 065
     Dates: start: 20091217, end: 20091231
  2. XELODA [Suspect]
     Dosage: 2 DOSE FORM IN THE MORNING AND ONE DOSE FORM IN THE EVENING.
     Route: 065
     Dates: start: 20091214, end: 20091215
  3. XELODA [Suspect]
     Indication: PRODUCT USED FOR UNKNOWN INDICATION
     Dosage: 3 DOSE FORM IN THE MORNING AND 3 DOSE FORM IN THE EVENING
     Route: 065
     Dates: start: 20091212, end: 20091213
  4. XELODA [Suspect]
     Route: 065
  5. XELODA [Suspect]
     Dosage: 2 DOSE FORM IN THE MORNING AND 3 DOSE FORM IN THE EVENING
     Route: 065

REACTIONS (2)
  - THROMBOCYTOPENIA [None]
  - ANAEMIA [None]
